FAERS Safety Report 9822041 (Version 2)
Quarter: 2014Q1

REPORT INFORMATION
  Report Type: Other
  Country: CN (occurrence: CN)
  Receive Date: 20140116
  Receipt Date: 20140120
  Transmission Date: 20141002
  Serious: Yes (Other)
  Sender: FDA-Public Use
  Company Number: CN-NAPPMUNDI-GBR-2014-0016853

PATIENT
  Sex: 0

DRUGS (1)
  1. MORPHINE SULFATE [Suspect]
     Indication: CANCER PAIN
     Route: 048

REACTIONS (6)
  - Anxiety [Recovered/Resolved]
  - Sleep disorder [Recovered/Resolved]
  - Somnolence [Recovered/Resolved]
  - Cyanosis [Recovered/Resolved]
  - Miosis [Recovered/Resolved]
  - Respiratory depression [Recovered/Resolved]
